FAERS Safety Report 17342889 (Version 1)
Quarter: 2020Q1

REPORT INFORMATION
  Report Type: Spontaneous
  Country: US (occurrence: US)
  Receive Date: 20200129
  Receipt Date: 20200129
  Transmission Date: 20200409
  Serious: No
  Sender: FDA-Public Use
  Company Number: US-ALLERGAN-1910617US

PATIENT
  Age: 25 Year
  Sex: Female

DRUGS (1)
  1. BOTOX COSMETIC [Suspect]
     Active Substance: ONABOTULINUMTOXINA
     Indication: BRUXISM
     Dosage: ACTUAL: 20 UNITS ON EACH SIDE, SINGLE
     Route: 030
     Dates: start: 20190304, end: 20190304

REACTIONS (9)
  - Speech disorder [Unknown]
  - Dysphagia [Unknown]
  - Ear discomfort [Unknown]
  - Off label use [Unknown]
  - Asthenia [Unknown]
  - Head discomfort [Not Recovered/Not Resolved]
  - Neck pain [Unknown]
  - Hypoaesthesia [Recovered/Resolved]
  - Joint stiffness [Unknown]

NARRATIVE: CASE EVENT DATE: 20190304
